FAERS Safety Report 7885116-X (Version None)
Quarter: 2011Q4

REPORT INFORMATION
  Report Type: 
  Country: None (occurrence: None)
  Receive Date: 20111102
  Receipt Date: 20111019
  Transmission Date: 20120403
  Serious: Yes (Hospitalization)
  Sender: FDA-Public Use
  Company Number: US-ROCHE-1005686

PATIENT
  Age: 66 Year
  Sex: Male
  Weight: 75.7 kg

DRUGS (13)
  1. GLUCOSAMINE/CHONDROITIN [Concomitant]
     Dates: start: 20090818
  2. AVASTIN [Suspect]
     Indication: HEAD AND NECK CANCER
     Dosage: 15MG/ KG IV OVER 30-90 MIN, DAY 1. SAE OCCURED DURING CYCLE 1. LAST DOSE ADMINISTERED ON 02 SEP 2009
     Route: 042
     Dates: start: 20090805
  3. ATENOLOL [Concomitant]
  4. ENALAPRIL [Concomitant]
  5. OXYCODONE HCL [Concomitant]
     Indication: PAIN
     Route: 048
  6. DOCETAXEL [Suspect]
     Indication: HEAD AND NECK CANCER
     Dosage: 75MG/M2 IV OVER 1 HR, DAY 1. SAE OCCURED IN CYCLE 1. LAST DOSE ADMINISTERED ON 02 SEP 2009 AT 135MG
     Route: 042
     Dates: start: 20090805
  7. OMEPRAZOLE [Concomitant]
  8. GLUCOSAMINE/CHONDROITIN [Concomitant]
  9. CARBOPLATIN [Suspect]
     Indication: HEAD AND NECK CANCER
     Dosage: LAST DOSE ADMINISTERED ON 02 SEP 2009 AT A DOSE OF 435MG
  10. FENOFIBRATE [Concomitant]
  11. ASPIRIN [Concomitant]
     Dosage: ENTERIC COATED
  12. CISPLATIN [Suspect]
     Indication: HEAD AND NECK CANCER
     Dosage: 75MG/M2 IV OVER 1-2 HRS, DAY 1.  SAE OCCURED DURING CYCLE 1. LAST DOSE ADMINISTERED ON 05/AUG/2009 A
     Dates: start: 20090805
  13. SIMVASTATIN [Concomitant]
     Dosage: AT BED TIME

REACTIONS (1)
  - RENAL FAILURE ACUTE [None]
